FAERS Safety Report 4659515-3 (Version None)
Quarter: 2005Q2

REPORT INFORMATION
  Report Type: 
  Country: None (occurrence: None)
  Receive Date: 20050412
  Receipt Date: 20050302
  Transmission Date: 20051028
  Serious: No
  Sender: FDA-Public Use
  Company Number: 2005S1000035

PATIENT
  Age: 56 Year
  Sex: Male
  Weight: 66 kg

DRUGS (6)
  1. CUBICIN [Suspect]
     Indication: OSTEOMYELITIS
     Dosage: 400 MG; Q24H; IV
     Route: 042
     Dates: start: 20041201
  2. CUBICIN [Suspect]
     Indication: STAPHYLOCOCCAL INFECTION
     Dosage: 400 MG; Q24H; IV
     Route: 042
     Dates: start: 20041201
  3. VICODIN [Concomitant]
  4. MULTI-VITAMIN [Concomitant]
  5. TOTAL PARENTERAL [Concomitant]
  6. NUTRITION [Concomitant]

REACTIONS (3)
  - CHILLS [None]
  - HEADACHE [None]
  - PYREXIA [None]
